FAERS Safety Report 18945793 (Version 1)
Quarter: 2021Q1

REPORT INFORMATION
  Report Type: Spontaneous
  Country: ES (occurrence: ES)
  Receive Date: 20210226
  Receipt Date: 20210226
  Transmission Date: 20210420
  Serious: Yes (Other)
  Sender: FDA-Public Use
  Company Number: ES-JNJFOC-20200617335

PATIENT
  Age: 63 Year
  Sex: Female

DRUGS (4)
  1. VELCADE [Suspect]
     Active Substance: BORTEZOMIB
     Indication: PLASMA CELL MYELOMA
     Route: 065
  2. DUROGESIC MATRIX [Suspect]
     Active Substance: FENTANYL
     Indication: RHEUMATOID ARTHRITIS
     Dosage: LOW?DOSE
     Route: 062
  3. LEVOFLOXACIN. [Suspect]
     Active Substance: LEVOFLOXACIN
     Indication: PRODUCT USED FOR UNKNOWN INDICATION
     Route: 065
  4. PREDNISONE. [Suspect]
     Active Substance: PREDNISONE
     Indication: RHEUMATOID ARTHRITIS
     Route: 065

REACTIONS (4)
  - Hepatitis [Recovered/Resolved]
  - Chronic kidney disease [Unknown]
  - Erythema [Unknown]
  - Myasthenia gravis crisis [Recovered/Resolved]
